FAERS Safety Report 23314332 (Version 1)
Quarter: 2023Q4

REPORT INFORMATION
  Report Type: Spontaneous
  Country: US (occurrence: US)
  Receive Date: 20231219
  Receipt Date: 20231219
  Transmission Date: 20240110
  Serious: Yes (Other)
  Sender: FDA-Public Use
  Company Number: US-TEVA-VS-3136500

PATIENT
  Age: 49 Year

DRUGS (2)
  1. PREDNISOLONE [Suspect]
     Active Substance: PREDNISOLONE
     Indication: Prophylaxis
     Route: 048
  2. PREDNISOLONE [Suspect]
     Active Substance: PREDNISOLONE
     Indication: Prophylaxis
     Dosage: LOW DOSE
     Route: 048

REACTIONS (3)
  - Thyroid dermatopathy [Recovering/Resolving]
  - Drug ineffective [Unknown]
  - Radiation thyroiditis [Unknown]
